FAERS Safety Report 7730539-2 (Version None)
Quarter: 2011Q3

REPORT INFORMATION
  Report Type: 
  Country: None (occurrence: None)
  Receive Date: 20110901
  Receipt Date: 20110901
  Transmission Date: 20111222
  Serious: Yes (Other)
  Sender: FDA-Public Use
  Company Number: None

PATIENT
  Age: 61 Year
  Sex: Female
  Weight: 61.2356 kg

DRUGS (1)
  1. MS CONTIN [Suspect]
     Dosage: 1-5 MG 2 PER DAY ORAL
     Route: 048
     Dates: start: 20101013, end: 20101101

REACTIONS (1)
  - PSYCHOTIC DISORDER [None]
